FAERS Safety Report 9232944 (Version 2)
Quarter: 2013Q2

REPORT INFORMATION
  Report Type: Spontaneous
  Country: JP (occurrence: JP)
  Receive Date: 20130416
  Receipt Date: 20130515
  Transmission Date: 20140414
  Serious: No
  Sender: FDA-Public Use
  Company Number: JP-ELI_LILLY_AND_COMPANY-JP201304002464

PATIENT
  Age: 50 Year
  Sex: Female

DRUGS (4)
  1. ZYPREXA [Suspect]
     Indication: BIPOLAR DISORDER
     Dosage: 5 MG, UNK
     Route: 048
     Dates: start: 20130216, end: 20130322
  2. CYMBALTA [Suspect]
     Indication: DEPRESSION
     Dosage: 20 MG, UNK
     Route: 048
     Dates: start: 20110509, end: 20130323
  3. LIMAS [Concomitant]
     Dosage: UNK
  4. MYSLEE [Concomitant]
     Dosage: UNK

REACTIONS (3)
  - Hepatic function abnormal [Recovered/Resolved]
  - Hyperphagia [Recovered/Resolved]
  - Insomnia [Recovered/Resolved]
